FAERS Safety Report 9233581 (Version 1)
Quarter: 2013Q2

REPORT INFORMATION
  Report Type: Spontaneous
  Country: US (occurrence: US)
  Receive Date: 20130416
  Receipt Date: 20130416
  Transmission Date: 20140414
  Serious: No
  Sender: FDA-Public Use
  Company Number: US-BANPHARM-20120387

PATIENT
  Age: 53 Year
  Sex: 0
  Weight: 75.28 kg

DRUGS (2)
  1. NAPROXEN SODIUM 220 MG [Suspect]
     Indication: BACK PAIN
     Route: 048
     Dates: start: 20121118, end: 20121119
  2. CALCIUM [Concomitant]
     Dates: start: 201208

REACTIONS (2)
  - Somnolence [Recovered/Resolved]
  - Incorrect dose administered [Unknown]
